FAERS Safety Report 5897109-2 (Version None)
Quarter: 2008Q3

REPORT INFORMATION
  Report Type: 
  Country: None (occurrence: None)
  Receive Date: 20080924
  Receipt Date: 20080604
  Transmission Date: 20090109
  Serious: Yes (Other)
  Sender: FDA-Public Use
  Company Number: US-ASTRAZENECA-2008UW11296

PATIENT
  Age: 20 Year
  Sex: Male

DRUGS (3)
  1. SEROQUEL [Suspect]
     Indication: BIPOLAR DISORDER
     Route: 048
  2. TEGRETOL [Concomitant]
  3. CLONIDINE [Concomitant]

REACTIONS (6)
  - COUGH [None]
  - HAEMOPTYSIS [None]
  - MUSCLE SPASMS [None]
  - MYALGIA [None]
  - SUICIDE ATTEMPT [None]
  - TREMOR [None]
